FAERS Safety Report 24441972 (Version 2)
Quarter: 2024Q4

REPORT INFORMATION
  Report Type: Spontaneous
  Country: KR (occurrence: KR)
  Receive Date: 20241016
  Receipt Date: 20241017
  Transmission Date: 20250115
  Serious: No
  Sender: ROCHE
  Company Number: KR-CHUGAI-2024005180

PATIENT
  Age: 5 Decade
  Sex: Male
  Weight: 73.0 kg

DRUGS (1)
  1. HEMLIBRA [Suspect]
     Active Substance: EMICIZUMAB-KXWH
     Indication: Product used for unknown indication
     Dosage: 150MG-3VIALS
     Route: 058
     Dates: start: 20231123

REACTIONS (1)
  - Joint stiffness [Recovered/Resolved]
